FAERS Safety Report 11891384 (Version 1)
Quarter: 2016Q1

REPORT INFORMATION
  Report Type: Spontaneous
  Country: US (occurrence: US)
  Receive Date: 20160106
  Receipt Date: 20160106
  Transmission Date: 20160526
  Serious: No
  Sender: FDA-Public Use
  Company Number: US-BAYER-2016-002334

PATIENT
  Age: 73 Year
  Sex: Female
  Weight: 81.63 kg

DRUGS (2)
  1. ALEVE [Suspect]
     Active Substance: NAPROXEN SODIUM
     Indication: ANALGESIC THERAPY
     Dosage: 1 DF, PRN
     Route: 048
     Dates: start: 2014
  2. CENTRUM [MINERALS NOS,VITAMINS NOS] [Concomitant]
     Dosage: UNK

REACTIONS (1)
  - Expired product administered [None]

NARRATIVE: CASE EVENT DATE: 201508
